FAERS Safety Report 17821561 (Version 1)
Quarter: 2020Q2

REPORT INFORMATION
  Report Type: Spontaneous
  Country: US (occurrence: US)
  Receive Date: 20200525
  Receipt Date: 20200525
  Transmission Date: 20200714
  Serious: No
  Sender: FDA-Public Use
  Company Number: US-GLAXOSMITHKLINE-US2020086606

PATIENT
  Sex: Male

DRUGS (1)
  1. EXCEDRIN MIGRAINE [Suspect]
     Active Substance: ACETAMINOPHEN\ASPIRIN\CAFFEINE
     Indication: MIGRAINE
     Dosage: 1 UNK
     Dates: start: 20200520, end: 20200520

REACTIONS (3)
  - Feeling abnormal [Unknown]
  - Swelling face [Unknown]
  - Flatulence [Unknown]

NARRATIVE: CASE EVENT DATE: 20200520
